FAERS Safety Report 5362163-3 (Version None)
Quarter: 2007Q2

REPORT INFORMATION
  Report Type: 
  Country: None (occurrence: None)
  Receive Date: 20070530
  Receipt Date: 20070310
  Transmission Date: 20071010
  Serious: No
  Sender: FDA-Public Use
  Company Number: 2007PV031466

PATIENT
  Age: 59 Year
  Sex: Female
  Weight: 149.687 kg

DRUGS (6)
  1. BYETTA [Suspect]
     Indication: DIABETES MELLITUS NON-INSULIN-DEPENDENT
     Dosage: 10 MCG;BID;SC ; 5 MCG;BID;SC
     Route: 058
     Dates: start: 20061001, end: 20070101
  2. BYETTA [Suspect]
     Indication: DIABETES MELLITUS NON-INSULIN-DEPENDENT
     Dosage: 10 MCG;BID;SC ; 5 MCG;BID;SC
     Route: 058
     Dates: start: 20070101
  3. ENBREL [Suspect]
     Indication: OSTEOARTHRITIS
     Dates: start: 20060101, end: 20070101
  4. ZOLOFT [Concomitant]
  5. METFORMIN HCL [Concomitant]
  6. TYLENOL ARTHRITIS [Concomitant]

REACTIONS (5)
  - ARTHRITIS [None]
  - BLOOD CREATININE INCREASED [None]
  - DEPRESSION [None]
  - VOMITING [None]
  - WEIGHT DECREASED [None]
